FAERS Safety Report 5587880-1 (Version None)
Quarter: 2008Q1

REPORT INFORMATION
  Report Type: 
  Country: None (occurrence: None)
  Receive Date: 20080109
  Receipt Date: 20080109
  Transmission Date: 20080703
  Serious: Yes (Death, Hospitalization)
  Sender: FDA-Public Use
  Company Number: None

PATIENT
  Age: 59 Year
  Sex: Male
  Weight: 70 kg

DRUGS (9)
  1. CETUXIMAB 11/16/07 [Suspect]
     Indication: HEPATIC NEOPLASM MALIGNANT
     Dosage: 400MG/M2 X1; 250MG 250MG/M2 WEEKLY IV
     Route: 042
     Dates: start: 20071116, end: 20071228
  2. OXALIPLATIN [Suspect]
     Dosage: 130MG/M2 EVERY 21 DAYS IV
     Route: 042
     Dates: start: 20071116, end: 20071228
  3. CAPECITABINE [Concomitant]
  4. OXYCODONE [Concomitant]
  5. LASIX [Concomitant]
  6. DEXAMETHASONE TAB [Concomitant]
  7. COMPAZINE [Concomitant]
  8. ZOFRAN [Concomitant]
  9. MEGACE [Concomitant]

REACTIONS (10)
  - AZOTAEMIA [None]
  - CLOSTRIDIUM DIFFICILE COLITIS [None]
  - GASTROINTESTINAL HAEMORRHAGE [None]
  - GENERAL PHYSICAL HEALTH DETERIORATION [None]
  - HAEMATEMESIS [None]
  - HEPATORENAL SYNDROME [None]
  - METABOLIC ACIDOSIS [None]
  - RENAL FAILURE ACUTE [None]
  - RESPIRATORY ALKALOSIS [None]
  - RESPIRATORY FAILURE [None]
